FAERS Safety Report 4636253-4 (Version None)
Quarter: 2005Q2

REPORT INFORMATION
  Report Type: 
  Country: None (occurrence: None)
  Receive Date: 20050415
  Receipt Date: 20040315
  Transmission Date: 20051028
  Serious: Yes (Other)
  Sender: FDA-Public Use
  Company Number: US-BRISTOL-MYERS SQUIBB COMPANY-12533071

PATIENT
  Age: 56 Year
  Sex: Male
  Weight: 118 kg

DRUGS (4)
  1. CARBOPLATIN [Suspect]
     Indication: BLADDER CANCER
     Dosage: DOSING AGAIN IN FEB AND MAR-2004
     Route: 042
     Dates: start: 20031101, end: 20031101
  2. GEMZAR [Suspect]
     Indication: BLADDER CANCER
     Dosage: ADD'L DOSE IN FEB-2004
     Route: 042
     Dates: start: 20031101, end: 20031101
  3. RADIATION THERAPY [Concomitant]
     Indication: BLADDER CANCER
     Dates: start: 20031101
  4. METAMUCIL-2 [Concomitant]

REACTIONS (2)
  - BLOOD URINE PRESENT [None]
  - THROMBOCYTOPENIA [None]
